FAERS Safety Report 10174563 (Version 1)
Quarter: 2014Q2

REPORT INFORMATION
  Report Type: Spontaneous
  Country: US (occurrence: None)
  Receive Date: 20140416
  Receipt Date: 20140416
  Transmission Date: 20141212
  Serious: No
  Sender: FDA-Public Use
  Company Number: 163-POMAL-14012146

PATIENT
  Age: 62 Year
  Sex: Male
  Weight: 85.96 kg

DRUGS (5)
  1. POMALYST (POMALIDOMIDE) (4 MILLIGRAM, CAPSULES) [Suspect]
     Indication: PLASMA CELL MYELOMA
     Dosage: 21 IN 21 D
     Route: 048
     Dates: start: 20130912, end: 201401
  2. FLEXERIL (CYCLOBENZAPRINE HYDROCHLORIDE) (UNKNOWN) [Concomitant]
  3. MORPHINE SULFATE (MORPHINE SULFATE) (UNKNOWN) [Concomitant]
  4. MS CONTIN (MORPHINE SULFATE) (UNKNOWN) [Concomitant]
  5. NEURONTIN (GABAPENTIN) (UNKNOWN) [Concomitant]

REACTIONS (2)
  - Drug intolerance [None]
  - No therapeutic response [None]
